FAERS Safety Report 6301369-3 (Version None)
Quarter: 2009Q3

REPORT INFORMATION
  Report Type: 
  Country: None (occurrence: None)
  Receive Date: 20090807
  Receipt Date: 20090804
  Transmission Date: 20100115
  Serious: Yes (Life-Threatening)
  Sender: FDA-Public Use
  Company Number: JP-ASTRAZENECA-2009SE06353

PATIENT
  Age: 70 Year
  Sex: Male
  Weight: 60 kg

DRUGS (9)
  1. CASODEX [Suspect]
     Indication: PROSTATE CANCER
     Route: 048
     Dates: start: 20090617, end: 20090722
  2. ZOLADEX [Concomitant]
     Indication: PROSTATE CANCER
     Route: 058
     Dates: start: 20090702, end: 20090702
  3. CRESTOR [Concomitant]
     Route: 048
  4. BASEN [Concomitant]
     Route: 048
  5. CONIEL [Concomitant]
     Route: 048
  6. BLOPRESS [Concomitant]
     Route: 048
  7. NITOROL [Concomitant]
     Route: 048
  8. URIEF [Concomitant]
     Route: 048
  9. EVIPROSTAT [Concomitant]
     Route: 048

REACTIONS (1)
  - DIABETIC KETOACIDOSIS [None]
